FAERS Safety Report 24773240 (Version 1)
Quarter: 2024Q4

REPORT INFORMATION
  Report Type: Spontaneous
  Country: US (occurrence: US)
  Receive Date: 20241225
  Receipt Date: 20241225
  Transmission Date: 20250115
  Serious: Yes (Hospitalization, Other)
  Sender: Long Grove Pharmaceuticals
  Company Number: US-Long Grove-000086

PATIENT
  Age: 31 Month
  Sex: Female

DRUGS (1)
  1. METHADONE [Suspect]
     Active Substance: METHADONE HYDROCHLORIDE

REACTIONS (3)
  - Neurotoxicity [Unknown]
  - Brain oedema [Unknown]
  - Overdose [Unknown]
